FAERS Safety Report 7457064-0 (Version None)
Quarter: 2011Q1

REPORT INFORMATION
  Report Type: 
  Country: None (occurrence: None)
  Receive Date: 20110302
  Receipt Date: 20101214
  Transmission Date: 20110831
  Serious: No
  Sender: FDA-Public Use
  Company Number: 023809

PATIENT
  Sex: Male

DRUGS (2)
  1. ASACOL [Suspect]
     Dosage: (REDUCED DOSE)
  2. CIMZIA [Suspect]
     Indication: COLITIS ULCERATIVE
     Dosage: (PFS SUBCUTANEOUS)
     Route: 058
     Dates: start: 20100115

REACTIONS (1)
  - FLATULENCE [None]
